FAERS Safety Report 15468060 (Version 1)
Quarter: 2018Q4

REPORT INFORMATION
  Report Type: Spontaneous
  Country: US (occurrence: US)
  Receive Date: 20181001
  Receipt Date: 20181001
  Transmission Date: 20190204
  Serious: Yes (Hospitalization)
  Sender: FDA-Public Use
  Company Number: None

PATIENT
  Age: 35 Year
  Sex: Female
  Weight: 99.8 kg

DRUGS (2)
  1. DAPTOMYCIN 700 MG IV Q2 4H [Concomitant]
     Dates: start: 20180511, end: 20180604
  2. PIPERACILLIN AND TAZOBACTAM [Suspect]
     Active Substance: PIPERACILLIN SODIUM\TAZOBACTAM SODIUM
     Indication: OSTEOMYELITIS BACTERIAL
     Dosage: ?          OTHER DOSE:4.5 G;OTHER FREQUENCY:EVERY 6 HRS.;?
     Route: 042
     Dates: start: 20180514, end: 20180604

REACTIONS (6)
  - Pyrexia [None]
  - Hyperhidrosis [None]
  - Dizziness [None]
  - Chills [None]
  - Abdominal discomfort [None]
  - Diarrhoea [None]

NARRATIVE: CASE EVENT DATE: 20180604
